FAERS Safety Report 9589529 (Version 2)
Quarter: 2013Q4

REPORT INFORMATION
  Report Type: Spontaneous
  Country: US (occurrence: US)
  Receive Date: 20131003
  Receipt Date: 20131003
  Transmission Date: 20140711
  Serious: No
  Sender: FDA-Public Use
  Company Number: US-AMGEN-USASP2012064003

PATIENT
  Age: 46 Year
  Sex: Female

DRUGS (1)
  1. ENBREL [Suspect]
     Indication: PSORIASIS
     Dosage: 50 MG, QWK
     Dates: start: 20060815, end: 20120912

REACTIONS (9)
  - Drug effect incomplete [Not Recovered/Not Resolved]
  - Toothache [Recovered/Resolved]
  - Insomnia [Not Recovered/Not Resolved]
  - Abdominal pain [Not Recovered/Not Resolved]
  - Back pain [Not Recovered/Not Resolved]
  - Tooth infection [Recovered/Resolved]
  - Psoriasis [Recovered/Resolved]
  - Herpes zoster [Not Recovered/Not Resolved]
  - Nasopharyngitis [Recovered/Resolved]
